FAERS Safety Report 7475061-6 (Version None)
Quarter: 2011Q2

REPORT INFORMATION
  Report Type: 
  Country: None (occurrence: None)
  Receive Date: 20110512
  Receipt Date: 20110503
  Transmission Date: 20111010
  Serious: Yes (Hospitalization)
  Sender: FDA-Public Use
  Company Number: US-US-EMD SERONO, INC.-7057945

PATIENT
  Sex: Male
  Weight: 75 kg

DRUGS (5)
  1. REBIF [Suspect]
     Indication: MULTIPLE SCLEROSIS
     Route: 058
     Dates: start: 20100201
  2. ADVIL LIQUI-GELS [Concomitant]
     Indication: PAIN
     Route: 048
     Dates: start: 20100301
  3. VITAMIN E [Concomitant]
     Indication: SUPPLEMENTATION THERAPY
     Dates: start: 20100301
  4. VIAGRA [Concomitant]
     Indication: ERECTILE DYSFUNCTION
     Route: 048
     Dates: start: 20110301
  5. CENTRUM [Concomitant]
     Indication: MEDICAL DIET
     Dates: start: 20090601

REACTIONS (4)
  - MULTIPLE SCLEROSIS RELAPSE [None]
  - BOWEL MOVEMENT IRREGULARITY [None]
  - SYNOVIAL CYST [None]
  - MUSCULAR WEAKNESS [None]
